FAERS Safety Report 12337248 (Version 4)
Quarter: 2019Q4

REPORT INFORMATION
  Report Type: Report from Study
  Country: CA (occurrence: CA)
  Receive Date: 20160505
  Receipt Date: 20191111
  Transmission Date: 20200122
  Serious: Yes (Other)
  Sender: FDA-Public Use
  Company Number: PHHY2016CA047441

PATIENT
  Age: 57 Year
  Sex: Female

DRUGS (5)
  1. SANDOSTATIN LAR DEPOT [Suspect]
     Active Substance: OCTREOTIDE ACETATE
     Indication: CARCINOID TUMOUR
     Dosage: 30 MG, QMO, (EVERY 4 WEEKS)
     Route: 030
     Dates: start: 2010
  2. SANDOSTATIN [Suspect]
     Active Substance: OCTREOTIDE ACETATE
     Indication: CARCINOID TUMOUR
     Dosage: UNK UNK, TID
     Route: 058
     Dates: start: 200902, end: 20160104
  3. SYNTHROID [Concomitant]
     Active Substance: LEVOTHYROXINE SODIUM
     Indication: PRODUCT USED FOR UNKNOWN INDICATION
     Dosage: 112 UG, QD
     Route: 065
  4. HUMALOG [Concomitant]
     Active Substance: INSULIN LISPRO
     Indication: DIABETES MELLITUS
     Dosage: UNK
     Route: 065
     Dates: start: 201803
  5. SYNTHROID [Concomitant]
     Active Substance: LEVOTHYROXINE SODIUM
     Dosage: 100 UG, QD
     Route: 065
     Dates: start: 2018

REACTIONS (46)
  - Stress [Unknown]
  - Anxiety [Unknown]
  - Hypoacusis [Unknown]
  - Musculoskeletal pain [Unknown]
  - Palpitations [Not Recovered/Not Resolved]
  - Abdominal pain [Unknown]
  - Abdominal discomfort [Unknown]
  - Malignant neoplasm progression [Unknown]
  - Pulmonary fibrosis [Unknown]
  - Chest pain [Unknown]
  - Cataract [Recovered/Resolved]
  - Swelling face [Unknown]
  - Asthma [Recovered/Resolved]
  - Psoriatic arthropathy [Unknown]
  - Pain [Unknown]
  - Influenza [Unknown]
  - Body temperature decreased [Unknown]
  - Tinnitus [Unknown]
  - Oropharyngeal pain [Unknown]
  - Ear pain [Unknown]
  - Drug ineffective [Unknown]
  - Malaise [Unknown]
  - Tooth infection [Unknown]
  - Diarrhoea [Recovered/Resolved]
  - Diarrhoea [Not Recovered/Not Resolved]
  - Fatigue [Unknown]
  - Device difficult to use [Unknown]
  - Insomnia [Unknown]
  - Infection [Unknown]
  - Vomiting [Unknown]
  - Carcinoid tumour [Unknown]
  - Pneumonia [Unknown]
  - Nasopharyngitis [Unknown]
  - Cough [Unknown]
  - Chills [Unknown]
  - Product administration error [Unknown]
  - Dyspnoea at rest [Unknown]
  - Emotional disorder [Unknown]
  - Headache [Unknown]
  - Sinonasal obstruction [Unknown]
  - Back pain [Unknown]
  - Heart rate irregular [Unknown]
  - Pulmonary pain [Unknown]
  - Blood pressure systolic increased [Unknown]
  - Sinus pain [Unknown]
  - Injection site pain [Recovered/Resolved]

NARRATIVE: CASE EVENT DATE: 201510
